FAERS Safety Report 24275378 (Version 2)
Quarter: 2024Q3

REPORT INFORMATION
  Report Type: Spontaneous
  Country: US (occurrence: US)
  Receive Date: 20240903
  Receipt Date: 20240927
  Transmission Date: 20241017
  Serious: Yes (Disabling, Other)
  Sender: AMGEN
  Company Number: US-AMGEN-USASP2024171603

PATIENT
  Age: 64 Year
  Sex: Male

DRUGS (28)
  1. TEPEZZA [Suspect]
     Active Substance: TEPROTUMUMAB-TRBW
     Indication: Endocrine ophthalmopathy
     Dosage: 980 MILLIGRAM, Q3WK
     Route: 042
     Dates: start: 20210928
  2. TEPEZZA [Suspect]
     Active Substance: TEPROTUMUMAB-TRBW
     Indication: Graves^ disease
     Dosage: 1000 MILLIGRAM, Q3WK
     Route: 042
     Dates: start: 20210929
  3. TEPEZZA [Suspect]
     Active Substance: TEPROTUMUMAB-TRBW
     Dosage: 2030 MILLIGRAM, Q3WK
     Route: 042
     Dates: start: 20211018
  4. TEPEZZA [Suspect]
     Active Substance: TEPROTUMUMAB-TRBW
     Dosage: 2030 MILLIGRAM, Q3WK
     Route: 042
     Dates: start: 20211109
  5. TEPEZZA [Suspect]
     Active Substance: TEPROTUMUMAB-TRBW
     Dosage: 2030 MILLIGRAM, Q3WK
     Route: 042
     Dates: start: 20211130
  6. TEPEZZA [Suspect]
     Active Substance: TEPROTUMUMAB-TRBW
     Dosage: 2030 MILLIGRAM, Q3WK
     Route: 042
     Dates: start: 20211221
  7. TEPEZZA [Suspect]
     Active Substance: TEPROTUMUMAB-TRBW
     Dosage: 2030 MILLIGRAM, Q3WK
     Route: 042
     Dates: start: 20220111
  8. TEPEZZA [Suspect]
     Active Substance: TEPROTUMUMAB-TRBW
     Dosage: 2030 MILLIGRAM, Q3WK
     Route: 042
     Dates: start: 20220201
  9. TEPEZZA [Suspect]
     Active Substance: TEPROTUMUMAB-TRBW
     Dosage: 2030 MILLIGRAM, Q3WK
     Route: 042
     Dates: start: 20220222
  10. ZETIA [Concomitant]
     Active Substance: EZETIMIBE
     Dosage: UNK, QD (TAKE HALF TABLET)
     Route: 048
  11. ATORVASTATIN [Concomitant]
     Active Substance: ATORVASTATIN
     Dosage: 40 MILLIGRAM, QD
     Route: 048
  12. ATORVASTATIN [Concomitant]
     Active Substance: ATORVASTATIN
     Dosage: 80 MILLIGRAM, QD
     Route: 048
  13. IRBESARTAN [Concomitant]
     Active Substance: IRBESARTAN
     Dosage: 300 MILLIGRAM, QD
     Route: 048
  14. Artificial tears [Concomitant]
     Dosage: UNK, QD (BOTH EYES)
     Route: 047
  15. TROPICAMIDE [Concomitant]
     Active Substance: TROPICAMIDE
  16. PHENCYCLIDINE [Concomitant]
     Active Substance: PHENCYCLIDINE
  17. BENADRYL [Concomitant]
     Active Substance: DIPHENHYDRAMINE HYDROCHLORIDE
     Dosage: 25 MILLIGRAM
     Route: 042
  18. PEPCID [Concomitant]
     Active Substance: FAMOTIDINE
     Dosage: 20 MILLIGRAM
     Route: 042
  19. EPINEPHRINE [Concomitant]
     Active Substance: EPINEPHRINE
     Dosage: 0.5 MILLIGRAM
     Route: 030
  20. PROVENTIL [Concomitant]
     Active Substance: ALBUTEROL
     Dosage: 2.5 MILLIGRAM
  21. SODIUM CHLORIDE [Concomitant]
     Active Substance: SODIUM CHLORIDE
     Route: 042
  22. SOLU-MEDROL [Concomitant]
     Active Substance: METHYLPREDNISOLONE SODIUM SUCCINATE
     Dosage: 125 MILLIGRAM (OVER 1-2 MINUTES)
     Route: 042
  23. AMLODIPINE [Concomitant]
     Active Substance: AMLODIPINE BESYLATE
     Dosage: 5 MILLIGRAM, QD
     Route: 048
  24. LEQVIO [Concomitant]
     Active Substance: INCLISIRAN SODIUM
     Dosage: UNK UNK, Q6MO
  25. ASPIRIN [Concomitant]
     Active Substance: ASPIRIN
     Dosage: 81 MILLIGRAM, QD
     Route: 048
     Dates: start: 20220830
  26. NEBIVOLOL [Concomitant]
     Active Substance: NEBIVOLOL
     Dosage: 5 MILLIGRAM, QD
     Route: 048
  27. INFLUENZA VIRUS VACCINE [Concomitant]
     Active Substance: INFLUENZA VIRUS VACCINE
     Route: 061
  28. TRIAMCINOLONE ACETONIDE [Concomitant]
     Active Substance: TRIAMCINOLONE ACETONIDE

REACTIONS (25)
  - Endocrine ophthalmopathy [Unknown]
  - Graves^ disease [Unknown]
  - Deafness permanent [Not Recovered/Not Resolved]
  - Syncope [Unknown]
  - Arteriosclerosis coronary artery [Unknown]
  - Loss of consciousness [Unknown]
  - Pericarditis [Unknown]
  - Pain [Unknown]
  - Emotional distress [Unknown]
  - Anxiety [Unknown]
  - Quality of life decreased [Unknown]
  - Discomfort [Unknown]
  - Blood pressure increased [Unknown]
  - Glycosylated haemoglobin increased [Unknown]
  - Tinnitus [Not Recovered/Not Resolved]
  - Blood glucose increased [Unknown]
  - Product use complaint [Unknown]
  - Aortic aneurysm [Unknown]
  - Hyperlipidaemia [Unknown]
  - Fall [Unknown]
  - Sinus bradycardia [Unknown]
  - Blood alkaline phosphatase decreased [Unknown]
  - Blood creatine phosphokinase increased [Unknown]
  - Fatigue [Unknown]
  - Headache [Unknown]

NARRATIVE: CASE EVENT DATE: 20211110
